FAERS Safety Report 7222184-2 (Version None)
Quarter: 2011Q1

REPORT INFORMATION
  Report Type: 
  Country: None (occurrence: None)
  Receive Date: 20110112
  Receipt Date: 20110110
  Transmission Date: 20110831
  Serious: Yes (Life-Threatening, Hospitalization, Other)
  Sender: FDA-Public Use
  Company Number: FR-B.I. PHARMACEUTICALS,INC./RIDGEFIELD-2010-FF-00189FF

PATIENT
  Sex: Female
  Weight: 59 kg

DRUGS (8)
  1. TOPALGIC [Concomitant]
     Dosage: 200 MG
  2. TARDYFERON [Concomitant]
     Dosage: 80 MG
  3. PRADAXA [Suspect]
     Indication: KNEE ARTHROPLASTY
     Dosage: 150 MG
     Route: 048
     Dates: start: 20091219
  4. INIPOMP [Suspect]
     Dosage: 20 MG
     Route: 048
  5. ATHYMIL [Concomitant]
     Dosage: 15 MG
  6. ALDACTAZINE [Concomitant]
  7. SPECIAFOLDINE [Concomitant]
  8. DIFFU K [Concomitant]

REACTIONS (4)
  - PHLEBITIS [None]
  - ANAEMIA [None]
  - DRUG INEFFECTIVE [None]
  - PULMONARY EMBOLISM [None]
